FAERS Safety Report 9086663 (Version 1)
Quarter: 2013Q1

REPORT INFORMATION
  Report Type: Spontaneous
  Country: BR (occurrence: BR)
  Receive Date: 20130131
  Receipt Date: 20130131
  Transmission Date: 20140127
  Serious: Yes (Hospitalization)
  Sender: FDA-Public Use
  Company Number: BR-PFIZER INC-2012075862

PATIENT
  Age: 62 Year
  Sex: Male
  Weight: 66 kg

DRUGS (3)
  1. SUTENT [Suspect]
     Indication: RENAL CELL CARCINOMA
     Dosage: 50 MG, 1X/DAY, 4 WEEKS ON/2 WEEKS OFF
     Route: 048
     Dates: start: 20120222
  2. TYLEX [Concomitant]
     Dosage: EVERY 8 HOURS
  3. OMEPRAZOLE [Concomitant]

REACTIONS (7)
  - Sensory loss [Not Recovered/Not Resolved]
  - Oral pain [Unknown]
  - Oral pain [Unknown]
  - Gallbladder disorder [Unknown]
  - Weight decreased [Unknown]
  - Pain [Unknown]
  - Dry skin [Unknown]
